FAERS Safety Report 9631565 (Version 1)
Quarter: 2013Q4

REPORT INFORMATION
  Report Type: Spontaneous
  Country: US (occurrence: US)
  Receive Date: 20131018
  Receipt Date: 20131018
  Transmission Date: 20140711
  Serious: No
  Sender: FDA-Public Use
  Company Number: US-PFIZER INC-2013297851

PATIENT
  Sex: Male

DRUGS (3)
  1. XANAX [Suspect]
     Dosage: 0.5 MG, 2X/DAY
  2. XANAX [Suspect]
     Dosage: 1 MG, 1X/DAY  AS NEEDED
  3. XIGRIS [Concomitant]
     Indication: DEPRESSION
     Dosage: UNK

REACTIONS (1)
  - Drug ineffective [Unknown]
